FAERS Safety Report 10912821 (Version 1)
Quarter: 2015Q1

REPORT INFORMATION
  Report Type: Spontaneous
  Country: US (occurrence: None)
  Receive Date: 20150128
  Receipt Date: 20150128
  Transmission Date: 20150721
  Serious: No
  Sender: FDA-Public Use
  Company Number: 2014TUS011567

PATIENT
  Age: 58 Year
  Sex: Male

DRUGS (3)
  1. BUPROPION (BUPROPION) [Concomitant]
     Active Substance: BUPROPION
  2. BRINTELLIX [Suspect]
     Active Substance: VORTIOXETINE HYDROBROMIDE
     Indication: MAJOR DEPRESSION
     Route: 048
     Dates: start: 2014, end: 2014
  3. LEXAPRO [Concomitant]
     Active Substance: ESCITALOPRAM OXALATE

REACTIONS (1)
  - Abdominal distension [None]

NARRATIVE: CASE EVENT DATE: 2014
